FAERS Safety Report 7041623-3 (Version None)
Quarter: 2010Q4

REPORT INFORMATION
  Report Type: 
  Country: None (occurrence: None)
  Receive Date: 20101013
  Receipt Date: 20100611
  Transmission Date: 20110411
  Serious: No
  Sender: FDA-Public Use
  Company Number: US-ASTRAZENECA-2010SE27307

PATIENT
  Age: 77 Year
  Sex: Male

DRUGS (1)
  1. SYMBICORT [Suspect]
     Indication: LUNG DISORDER
     Dosage: 2 PUFFS
     Route: 055

REACTIONS (2)
  - DIZZINESS [None]
  - INCORRECT DOSE ADMINISTERED [None]
